FAERS Safety Report 15628970 (Version 5)
Quarter: 2019Q2

REPORT INFORMATION
  Report Type: Report from Study
  Country: US (occurrence: US)
  Receive Date: 20181116
  Receipt Date: 20190408
  Transmission Date: 20190711
  Serious: Yes (Other)
  Sender: FDA-Public Use
  Company Number: US-GILEAD-2018-0374887

PATIENT
  Age: 68 Year
  Sex: Female
  Weight: 57.6 kg

DRUGS (4)
  1. LACTULOSE. [Concomitant]
     Active Substance: LACTULOSE
  2. OPSUMIT [Concomitant]
     Active Substance: MACITENTAN
     Dosage: UNK
     Dates: start: 20190327
  3. OXYGEN. [Concomitant]
     Active Substance: OXYGEN
  4. AMBRISENTAN [Suspect]
     Active Substance: AMBRISENTAN
     Indication: PRODUCT USED FOR UNKNOWN INDICATION
     Dosage: 5 MG, QD
     Route: 065
     Dates: start: 20160708

REACTIONS (21)
  - Syncope [Recovered/Resolved]
  - Hypotension [Unknown]
  - Fall [Unknown]
  - Vomiting [Not Recovered/Not Resolved]
  - Headache [Not Recovered/Not Resolved]
  - Head injury [Unknown]
  - Diarrhoea [Unknown]
  - Eye contusion [Unknown]
  - Muscular weakness [Unknown]
  - Swelling [Unknown]
  - Vision blurred [Recovered/Resolved]
  - Anaemia [Unknown]
  - Pneumonia [Not Recovered/Not Resolved]
  - Head injury [Unknown]
  - Syncope [Unknown]
  - Syncope [Recovered/Resolved]
  - Ammonia increased [Unknown]
  - Neuropathy peripheral [Unknown]
  - Liver function test abnormal [Unknown]
  - Syncope [Recovered/Resolved]
  - Balance disorder [Not Recovered/Not Resolved]

NARRATIVE: CASE EVENT DATE: 201811
